FAERS Safety Report 9227484 (Version 1)
Quarter: 2013Q1

REPORT INFORMATION
  Report Type: Spontaneous
  Country: US (occurrence: None)
  Receive Date: 20121004
  Receipt Date: 20121004
  Transmission Date: 20140127
  Serious: Yes (Other)
  Sender: FDA-Public Use
  Company Number: PHEH2012US011150

PATIENT
  Sex: Female

DRUGS (1)
  1. COMBIPATCH [Suspect]
     Route: 062

REACTIONS (1)
  - Depression [None]
